FAERS Safety Report 17278824 (Version 1)
Quarter: 2020Q1

REPORT INFORMATION
  Report Type: Spontaneous
  Country: FR (occurrence: FR)
  Receive Date: 20200116
  Receipt Date: 20200116
  Transmission Date: 20200409
  Serious: Yes (Hospitalization)
  Sender: FDA-Public Use
  Company Number: FR-PFIZER INC-2020015411

PATIENT
  Age: 52 Year
  Sex: Male

DRUGS (4)
  1. ALDACTONE [Suspect]
     Active Substance: SPIRONOLACTONE
     Indication: ASCITES
     Dosage: 150 MG, 1X/DAY
     Route: 048
     Dates: end: 20191126
  2. CLOZAPINE. [Interacting]
     Active Substance: CLOZAPINE
     Indication: SCHIZOPHRENIA
     Dosage: 200 MG, 1X/DAY
     Route: 048
     Dates: start: 20191108, end: 20191126
  3. PROPANOL [PROPRANOLOL HYDROCHLORIDE] [Interacting]
     Active Substance: PROPRANOLOL HYDROCHLORIDE
     Indication: VARICES OESOPHAGEAL
     Dosage: 160 MG, 1X/DAY
     Route: 048
     Dates: end: 20191126
  4. OLANZAPINE. [Interacting]
     Active Substance: OLANZAPINE
     Indication: SCHIZOPHRENIA
     Dosage: 10 MG, 1X/DAY
     Route: 048
     Dates: end: 20191115

REACTIONS (4)
  - Hypotension [Recovered/Resolved]
  - Drug interaction [Recovered/Resolved]
  - Hypothermia [Recovering/Resolving]
  - Transaminases increased [Recovered/Resolved]

NARRATIVE: CASE EVENT DATE: 20191126
